FAERS Safety Report 7715735-2 (Version None)
Quarter: 2011Q3

REPORT INFORMATION
  Report Type: 
  Country: None (occurrence: None)
  Receive Date: 20110829
  Receipt Date: 20110825
  Transmission Date: 20111222
  Serious: Yes (Other)
  Sender: FDA-Public Use
  Company Number: US-PFIZER INC-2011198634

PATIENT
  Sex: Female

DRUGS (2)
  1. LIPITOR [Suspect]
     Dosage: 10 MG, 1X/DAY
  2. LIPITOR [Suspect]
     Dosage: 20 MG, 1X/DAY

REACTIONS (3)
  - PAIN IN EXTREMITY [None]
  - GAIT DISTURBANCE [None]
  - LIMB DISCOMFORT [None]
